FAERS Safety Report 5884624-0 (Version None)
Quarter: 2008Q3

REPORT INFORMATION
  Report Type: 
  Country: None (occurrence: None)
  Receive Date: 20080911
  Receipt Date: 20080904
  Transmission Date: 20090109
  Serious: Yes (Other)
  Sender: FDA-Public Use
  Company Number: 2008SP018173

PATIENT
  Age: 29 Year
  Sex: Male

DRUGS (3)
  1. NASONEX [Suspect]
     Indication: INFLUENZA
     Dosage: 2 DF; BID; NAS
     Route: 045
     Dates: start: 20030415, end: 20080315
  2. RHINOCORT [Suspect]
     Indication: INFLUENZA
     Dosage: 2 DF; BID; NAS
     Route: 045
     Dates: start: 20030415, end: 20080315
  3. MEDROL [Suspect]
     Indication: UPPER LIMB FRACTURE
     Dates: start: 20061201

REACTIONS (12)
  - ABASIA [None]
  - ARTHRALGIA [None]
  - BONE INFARCTION [None]
  - BONE PAIN [None]
  - INFLAMMATION [None]
  - INSOMNIA [None]
  - MOVEMENT DISORDER [None]
  - OSTEONECROSIS [None]
  - PAIN IN EXTREMITY [None]
  - PARAESTHESIA [None]
  - SENSORY LOSS [None]
  - UPPER LIMB FRACTURE [None]
